FAERS Safety Report 7866289-1 (Version None)
Quarter: 2011Q4

REPORT INFORMATION
  Report Type: 
  Country: None (occurrence: None)
  Receive Date: 20111028
  Receipt Date: 20110526
  Transmission Date: 20120403
  Serious: No
  Sender: FDA-Public Use
  Company Number: US-GLAXOSMITHKLINE-A0929302A

PATIENT
  Age: 33 Year
  Sex: Male

DRUGS (21)
  1. NIACIN [Concomitant]
  2. AMOXIPEN [Concomitant]
  3. FLONASE [Concomitant]
  4. PREDNISONE [Concomitant]
  5. CALCIUM CARBONATE [Concomitant]
  6. ZYRTEC [Concomitant]
  7. NIASPAN [Concomitant]
  8. VITAMIN D [Concomitant]
  9. LEVOTHYROXINE SODIUM [Concomitant]
  10. AMOXICILLIN [Concomitant]
  11. IBUPROFEN (ADVIL) [Concomitant]
  12. ADVAIR DISKUS 100/50 [Suspect]
     Indication: ASTHMA
     Dosage: 1PUFF PER DAY
     Route: 055
     Dates: start: 20040101
  13. ALBUTEROL [Concomitant]
  14. DARVOCET [Concomitant]
  15. GAS X [Concomitant]
  16. TAMIFLU [Concomitant]
  17. METFORMIN HCL [Concomitant]
  18. ACTIGALL [Concomitant]
  19. MORPHINE [Concomitant]
  20. TYLENOL-500 [Concomitant]
  21. GAVISCON [Concomitant]

REACTIONS (3)
  - VITAMIN D DECREASED [None]
  - THYROID FUNCTION TEST ABNORMAL [None]
  - FATIGUE [None]
